FAERS Safety Report 24853820 (Version 4)
Quarter: 2025Q1

REPORT INFORMATION
  Report Type: Spontaneous
  Country: AT (occurrence: AT)
  Receive Date: 20250117
  Receipt Date: 20250319
  Transmission Date: 20250409
  Serious: Yes (Other)
  Sender: SANOFI AVENTIS
  Company Number: AT-SANOFI-02369845

PATIENT
  Age: 61 Year
  Sex: Male

DRUGS (1)
  1. DUPIXENT [Suspect]
     Active Substance: DUPILUMAB
     Indication: Psoriasis
     Dosage: 300 MG, QOW
     Route: 065
     Dates: start: 202404, end: 20250107

REACTIONS (8)
  - Circulatory collapse [Recovered/Resolved]
  - Swelling [Unknown]
  - Feeling hot [Unknown]
  - Hyperhidrosis [Unknown]
  - Device issue [Unknown]
  - Dizziness [Unknown]
  - Injection site pain [Unknown]
  - Drug effective for unapproved indication [Unknown]

NARRATIVE: CASE EVENT DATE: 20241225
